FAERS Safety Report 9282932 (Version 1)
Quarter: 2013Q2

REPORT INFORMATION
  Report Type: Spontaneous
  Country: ES (occurrence: ES)
  Receive Date: 20130510
  Receipt Date: 20130510
  Transmission Date: 20140414
  Serious: Yes (Death, Hospitalization, Other)
  Sender: FDA-Public Use
  Company Number: PHHY2013ES045507

PATIENT
  Age: 36 Year
  Sex: Female

DRUGS (11)
  1. FLUCONAZOLE [Suspect]
     Indication: ORAL CANDIDIASIS
     Dosage: 100 MG, PER DAY
  2. ITRACONAZOLE [Suspect]
     Indication: ORAL CANDIDIASIS
     Dosage: 100 MG, PER DAY
     Route: 048
     Dates: start: 20030306
  3. VORICONAZOLE [Suspect]
     Indication: ASPERGILLUS INFECTION
     Dosage: 6 MG/KG, Q12H, FOR THE FIRST 24 HOURS
     Route: 042
  4. VORICONAZOLE [Suspect]
     Dosage: 4 MG/KG, Q12H
     Route: 042
  5. VORICONAZOLE [Suspect]
     Indication: ASPERGILLUS INFECTION
     Dosage: 200 MG, Q12H
     Route: 048
     Dates: end: 200403
  6. VORICONAZOLE [Suspect]
     Dosage: 200 MG, Q12H
     Route: 048
  7. VORICONAZOLE [Suspect]
     Dates: start: 200405
  8. VORICONAZOLE [Suspect]
     Dosage: 200 MG, Q12H
     Dates: start: 200409
  9. AMPHOTERICIN B [Concomitant]
     Indication: ASPERGILLUS INFECTION
  10. CASPOFUNGIN [Concomitant]
     Indication: ASPERGILLUS INFECTION
  11. AMPHOTERICIN B, LIPOSOME [Concomitant]

REACTIONS (9)
  - Death [Fatal]
  - Oral candidiasis [Unknown]
  - Bronchopulmonary aspergillosis [Unknown]
  - Aspergillus infection [Unknown]
  - Respiratory disorder [Not Recovered/Not Resolved]
  - Respiratory tract infection [Unknown]
  - Pathogen resistance [Unknown]
  - Pneumonia [Unknown]
  - Condition aggravated [Unknown]
